FAERS Safety Report 10241131 (Version 1)
Quarter: 2014Q1

REPORT INFORMATION
  Report Type: Spontaneous
  Country: US (occurrence: None)
  Receive Date: 20140306
  Receipt Date: 20140306
  Transmission Date: 20141002
  Serious: Yes (Hospitalization)
  Sender: FDA-Public Use
  Company Number: 163-21880-13041157

PATIENT
  Age: 77 Year
  Sex: Female

DRUGS (1)
  1. REVLIMID (LENALIDOMIDE) (CAPSULES) [Suspect]
     Indication: MYELODYSPLASTIC SYNDROME
     Dosage: 5 MG , 21 IN 21 D, CAPSULES  PO 12/03/2012 - TEMPORARILY INTERRUPTED
     Route: 048
     Dates: start: 20121203

REACTIONS (1)
  - Chronic obstructive pulmonary disease [None]
